FAERS Safety Report 15238385 (Version 1)
Quarter: 2018Q3

REPORT INFORMATION
  Report Type: Spontaneous
  Country: US (occurrence: US)
  Receive Date: 20180710
  Receipt Date: 20180710
  Transmission Date: 20181010
  Serious: Yes (Hospitalization)
  Sender: FDA-Public Use
  Company Number: None

PATIENT
  Sex: Male

DRUGS (23)
  1. TACROLIMUS. [Suspect]
     Active Substance: TACROLIMUS
     Indication: STEM CELL TRANSPLANT
     Route: 048
     Dates: start: 20160514
  2. CHOLECALCIF [Concomitant]
  3. LEVALBUTEROL. [Concomitant]
     Active Substance: LEVALBUTEROL
  4. LORAZEPAM. [Concomitant]
     Active Substance: LORAZEPAM
  5. PANTOPRAZOLE [Concomitant]
     Active Substance: PANTOPRAZOLE
  6. SMZ/TMP [Concomitant]
     Active Substance: SULFAMETHOXAZOLE\TRIMETHOPRIM
  7. CRESEMBA [Concomitant]
     Active Substance: ISAVUCONAZONIUM SULFATE
  8. LOPERAMIDE [Concomitant]
     Active Substance: LOPERAMIDE
  9. PENTAM 300 [Concomitant]
     Active Substance: PENTAMIDINE ISETHIONATE
  10. ELIQUIS [Concomitant]
     Active Substance: APIXABAN
  11. FLOMAX [Concomitant]
     Active Substance: TAMSULOSIN HYDROCHLORIDE
  12. LORATADINE. [Concomitant]
     Active Substance: LORATADINE
  13. MULTI?VITAMIN [Concomitant]
     Active Substance: .ALPHA.-TOCOPHEROL ACETATE, DL-\ASCORBIC ACID\CYANOCOBALAMIN\FLUORIDE ION\FOLIC ACID\NIACIN\PYRIDOXINE\RIBOFLAVIN\THIAMINE\VITAMIN A\VITAMIN D
  14. REFRESH [Concomitant]
     Active Substance: UNSPECIFIED INGREDIENT
  15. CALCIUM [Concomitant]
     Active Substance: CALCIUM
  16. FISH OIL [Concomitant]
     Active Substance: FISH OIL
  17. MAGNES/ZINC [Concomitant]
  18. FOLIC ACID. [Concomitant]
     Active Substance: FOLIC ACID
  19. URSODIOL. [Concomitant]
     Active Substance: URSODIOL
  20. ACYCLOVIR. [Concomitant]
     Active Substance: ACYCLOVIR
  21. POTASSIUM [Concomitant]
     Active Substance: POTASSIUM
  22. SOTALOL. [Concomitant]
     Active Substance: SOTALOL
  23. PREDNISONE. [Concomitant]
     Active Substance: PREDNISONE

REACTIONS (2)
  - Colonoscopy [None]
  - Hospitalisation [None]
